FAERS Safety Report 26108072 (Version 1)
Quarter: 2025Q4

REPORT INFORMATION
  Report Type: Spontaneous
  Country: US (occurrence: None)
  Receive Date: 20251127
  Receipt Date: 20251127
  Transmission Date: 20260118
  Serious: Yes (unspecified)
  Sender: FDA-CTU
  Company Number: None

PATIENT
  Age: 67 Year
  Sex: Female
  Weight: 46.8 kg

DRUGS (3)
  1. TRAZODONE [Suspect]
     Active Substance: TRAZODONE HYDROCHLORIDE
     Indication: Insomnia
     Dosage: OTHER QUANTITY : 1 TABLET(S);?FREQUENCY : AT BEDTIME;?
     Route: 048
     Dates: start: 20251125, end: 20251127
  2. LORAZEPAM [Suspect]
     Active Substance: LORAZEPAM
  3. ATENOLOL [Concomitant]
     Active Substance: ATENOLOL

REACTIONS (7)
  - Eye irritation [None]
  - Dry mouth [None]
  - Palpitations [None]
  - Anxiety [None]
  - Sleep disorder [None]
  - Fatigue [None]
  - Irritability [None]

NARRATIVE: CASE EVENT DATE: 20251125
